FAERS Safety Report 25785728 (Version 1)
Quarter: 2025Q3

REPORT INFORMATION
  Report Type: Spontaneous
  Country: EU (occurrence: EU)
  Receive Date: 20250910
  Receipt Date: 20250910
  Transmission Date: 20251020
  Serious: Yes (Hospitalization)
  Sender: MYLAN
  Company Number: EU-MYLANLABS-2025M1076675

PATIENT
  Age: 65 Year
  Sex: Male

DRUGS (8)
  1. HYDROCORTISONE [Suspect]
     Active Substance: HYDROCORTISONE
     Indication: Adrenal insufficiency
     Dosage: 20 MILLIGRAM, TID (RECEIVED THRICE DAILY)
  2. CISPLATIN [Suspect]
     Active Substance: CISPLATIN
     Indication: Aesthesioneuroblastoma
  3. ETOPOSIDE [Suspect]
     Active Substance: ETOPOSIDE
     Indication: Aesthesioneuroblastoma
  4. METYRAPONE [Suspect]
     Active Substance: METYRAPONE
     Indication: Adrenal insufficiency
     Dosage: RECEIVED  1?1.5G, QD
  5. MIFEPRISTONE [Suspect]
     Active Substance: MIFEPRISTONE
     Indication: Adrenal insufficiency
     Dosage: RECEIVED 600?1200 MG, QD
  6. FLUDROCORTISONE [Suspect]
     Active Substance: FLUDROCORTISONE
     Indication: Adrenal insufficiency
     Dosage: 50 MICROGRAM, QD
  7. LERCANIDIPINE [Concomitant]
     Active Substance: LERCANIDIPINE
     Indication: Hypertension
     Dosage: 10 MILLIGRAM, BID
  8. PREDNISONE [Concomitant]
     Active Substance: PREDNISONE
     Indication: Sinusitis
     Dosage: 60 MILLIGRAM, QD (RECEIVED FOR 5 DAYS)

REACTIONS (2)
  - Drug ineffective [Unknown]
  - Off label use [Unknown]
